FAERS Safety Report 10733238 (Version 1)
Quarter: 2015Q1

REPORT INFORMATION
  Report Type: Spontaneous
  Country: ES (occurrence: ES)
  Receive Date: 20150123
  Receipt Date: 20150123
  Transmission Date: 20150721
  Serious: Yes (Other)
  Sender: FDA-Public Use
  Company Number: PHHY2014ES131594

PATIENT

DRUGS (1)
  1. AFINITOR [Suspect]
     Active Substance: EVEROLIMUS
     Indication: RENAL CANCER
     Dosage: 10 MG, UNK
     Route: 065
     Dates: start: 20140805, end: 20140915

REACTIONS (6)
  - Pneumonitis [Recovered/Resolved]
  - Cough [Unknown]
  - Bronchial wall thickening [Unknown]
  - Bronchopulmonary disease [Recovered/Resolved]
  - Superinfection [Unknown]
  - Nasopharyngitis [Unknown]

NARRATIVE: CASE EVENT DATE: 20140915
